FAERS Safety Report 7396039-7 (Version None)
Quarter: 2011Q2

REPORT INFORMATION
  Report Type: 
  Country: None (occurrence: None)
  Receive Date: 20110406
  Receipt Date: 20110322
  Transmission Date: 20111010
  Serious: Yes (Hospitalization)
  Sender: FDA-Public Use
  Company Number: DE-JNJFOC-20101204972

PATIENT
  Sex: Male

DRUGS (1)
  1. REMICADE [Suspect]
     Indication: PRODUCT USED FOR UNKNOWN INDICATION
     Route: 042

REACTIONS (6)
  - POSTOPERATIVE WOUND INFECTION [None]
  - GASTROINTESTINAL INFECTION [None]
  - URINARY TRACT INFECTION [None]
  - FOOT OPERATION [None]
  - POLYP [None]
  - GASTRITIS [None]
